FAERS Safety Report 8474860-1 (Version None)
Quarter: 2012Q2

REPORT INFORMATION
  Report Type: 
  Country: None (occurrence: None)
  Receive Date: 20120628
  Receipt Date: 20120622
  Transmission Date: 20120825
  Serious: Yes (Other)
  Sender: FDA-Public Use
  Company Number: GB-PFIZER INC-2012150342

PATIENT
  Age: 36 Year
  Sex: Female

DRUGS (4)
  1. EFFEXOR XR [Suspect]
     Indication: ANXIETY
     Dosage: UNK
     Dates: start: 20110401
  2. VENLAFAXINE [Suspect]
     Indication: DEPRESSION
     Dosage: UNK
     Dates: start: 20110101, end: 20110401
  3. VENLAFAXINE [Suspect]
     Indication: ANXIETY
  4. OMEPRAZOLE [Concomitant]

REACTIONS (2)
  - BLOOD PROLACTIN INCREASED [None]
  - MENSTRUAL DISORDER [None]
